FAERS Safety Report 25948798 (Version 1)
Quarter: 2025Q4

REPORT INFORMATION
  Report Type: Spontaneous
  Country: US (occurrence: US)
  Receive Date: 20251022
  Receipt Date: 20251022
  Transmission Date: 20260117
  Serious: No
  Sender: GALPHARM INTERNATIONAL
  Company Number: US-PERRIGO-25US001445

PATIENT
  Age: 11 Year
  Weight: 36.281 kg

DRUGS (2)
  1. CHILDRENS CETIRIZINE HYDROCHLORIDE ALLERGY [Suspect]
     Active Substance: CETIRIZINE HYDROCHLORIDE
     Indication: Hypersensitivity
     Dosage: 5 MG, SINGLE
     Route: 048
     Dates: start: 20250129, end: 20250129
  2. CHILDRENS CETIRIZINE HYDROCHLORIDE ALLERGY [Suspect]
     Active Substance: CETIRIZINE HYDROCHLORIDE
     Dosage: 10 MG, SINGLE
     Route: 048
     Dates: start: 20250129, end: 20250129

REACTIONS (3)
  - Extra dose administered [Recovered/Resolved]
  - Product dose confusion [Recovered/Resolved]
  - Product use in unapproved indication [Recovered/Resolved]

NARRATIVE: CASE EVENT DATE: 20250129
